FAERS Safety Report 8215923-5 (Version None)
Quarter: 2012Q1

REPORT INFORMATION
  Report Type: 
  Country: None (occurrence: None)
  Receive Date: 20120316
  Receipt Date: 20120307
  Transmission Date: 20120608
  Serious: Yes (Hospitalization)
  Sender: FDA-Public Use
  Company Number: US-JNJFOC-20120205323

PATIENT
  Sex: Male
  Weight: 42.3 kg

DRUGS (3)
  1. METHOTREXATE [Concomitant]
  2. BUDESONIDE [Concomitant]
  3. INFLIXIMAB, RECOMBINANT [Suspect]
     Indication: INFLAMMATORY BOWEL DISEASE
     Route: 042
     Dates: start: 20110517

REACTIONS (1)
  - ABDOMINAL ADHESIONS [None]
